FAERS Safety Report 15729843 (Version 1)
Quarter: 2018Q4

REPORT INFORMATION
  Report Type: Spontaneous
  Country: US (occurrence: US)
  Receive Date: 20181130
  Receipt Date: 20181130
  Transmission Date: 20190205
  Serious: No
  Sender: FDA-Public Use
  Company Number: None

PATIENT
  Sex: Female

DRUGS (1)
  1. BOTOX [Suspect]
     Active Substance: ONABOTULINUMTOXINA
     Dates: start: 2014, end: 201809

REACTIONS (2)
  - Drug hypersensitivity [None]
  - Product quality issue [None]

NARRATIVE: CASE EVENT DATE: 20181129
